FAERS Safety Report 8154058-7 (Version None)
Quarter: 2012Q1

REPORT INFORMATION
  Report Type: 
  Country: None (occurrence: None)
  Receive Date: 20120221
  Receipt Date: 20120217
  Transmission Date: 20120608
  Serious: Yes (Other)
  Sender: FDA-Public Use
  Company Number: US-ROCHE-1013296

PATIENT
  Sex: Male

DRUGS (1)
  1. ZELBORAF [Suspect]
     Indication: PRODUCT USED FOR UNKNOWN INDICATION
     Dosage: UNKNOWN
     Route: 065

REACTIONS (8)
  - DECREASED APPETITE [None]
  - NEOPLASM [None]
  - INFLUENZA LIKE ILLNESS [None]
  - FATIGUE [None]
  - ARTHRALGIA [None]
  - SKIN PAPILLOMA [None]
  - PYREXIA [None]
  - MYALGIA [None]
